FAERS Safety Report 10410340 (Version 1)
Quarter: 2014Q2

REPORT INFORMATION
  Report Type: Spontaneous
  Country: US (occurrence: None)
  Receive Date: 20140530
  Receipt Date: 20140530
  Transmission Date: 20141212
  Serious: No
  Sender: FDA-Public Use
  Company Number: 225931LEO

PATIENT
  Sex: Female

DRUGS (1)
  1. PICATO (INGENOL MEBUTATE) (0.05 %, GEL) [Suspect]
     Indication: ACTINIC KERATOSIS
     Dosage: 6 TUBES ON EACH LEG ON DAY 1; 6 TUBES ON 1 LEG AND 5 TUBES ON OTHER LEG ON DAY 2 DUE TO MISSING TUBE
     Dates: start: 20140201, end: 20140202

REACTIONS (5)
  - Drug administered at inappropriate site [None]
  - Product quality issue [None]
  - Inappropriate schedule of drug administration [None]
  - Accidental overdose [None]
  - Product packaging quantity issue [None]
